FAERS Safety Report 5503525-0 (Version None)
Quarter: 2007Q4

REPORT INFORMATION
  Report Type: 
  Country: None (occurrence: None)
  Receive Date: 20071029
  Receipt Date: 20071011
  Transmission Date: 20080405
  Serious: Yes (Hospitalization, Disabling)
  Sender: FDA-Public Use
  Company Number: 002#8#2007-00263

PATIENT
  Age: 34 Year
  Sex: Male

DRUGS (4)
  1. NITROGLYCERIN [Suspect]
     Indication: PERIPHERAL VASCULAR DISORDER
  2. NIFEDIPINE [Suspect]
     Indication: PAIN IN EXTREMITY
  3. HYDROXYUREA [Concomitant]
  4. ASPIRIN [Suspect]
     Indication: PAIN IN EXTREMITY

REACTIONS (7)
  - CYANOSIS [None]
  - FINGER AMPUTATION [None]
  - GANGRENE [None]
  - NO THERAPEUTIC RESPONSE [None]
  - PERIPHERAL ARTERIAL OCCLUSIVE DISEASE [None]
  - PERIPHERAL ISCHAEMIA [None]
  - PERIPHERAL VASCULAR DISORDER [None]
